FAERS Safety Report 6261190-1 (Version None)
Quarter: 2009Q3

REPORT INFORMATION
  Report Type: 
  Country: None (occurrence: None)
  Receive Date: 20090709
  Receipt Date: 20080627
  Transmission Date: 20100115
  Serious: No
  Sender: FDA-Public Use
  Company Number: US-KINGPHARMUSA00001-K200800752

PATIENT
  Age: 47 Year
  Sex: Female
  Weight: 86.168 kg

DRUGS (3)
  1. LEVOXYL [Suspect]
     Indication: HYPOTHYROIDISM
     Dosage: 50 MCG, QD
     Route: 048
     Dates: start: 20080601
  2. BYETTA [Concomitant]
     Indication: INSULIN RESISTANCE
  3. METFORMIN HCL [Concomitant]
     Indication: INSULIN RESISTANCE
     Dosage: UNK, UNK

REACTIONS (3)
  - ARTHRALGIA [None]
  - HEADACHE [None]
  - MENTAL IMPAIRMENT [None]
